FAERS Safety Report 18988012 (Version 4)
Quarter: 2023Q2

REPORT INFORMATION
  Report Type: Spontaneous
  Country: US (occurrence: US)
  Receive Date: 20210309
  Receipt Date: 20230407
  Transmission Date: 20230721
  Serious: Yes (Hospitalization, Other)
  Sender: FDA-Public Use
  Company Number: US-GILEAD-2021-0519267

PATIENT
  Age: 40 Year
  Sex: Male
  Weight: 68.038 kg

DRUGS (40)
  1. VIREAD [Suspect]
     Active Substance: TENOFOVIR DISOPROXIL FUMARATE
     Indication: HIV infection
     Dosage: UNK
     Route: 048
     Dates: start: 2006
  2. VIREAD [Suspect]
     Active Substance: TENOFOVIR DISOPROXIL FUMARATE
     Dosage: UNK
     Route: 048
     Dates: start: 2001, end: 201101
  3. TRUVADA [Suspect]
     Active Substance: EMTRICITABINE\TENOFOVIR DISOPROXIL FUMARATE
     Indication: HIV infection
     Route: 065
  4. SEVELAMER CARBONATE [Concomitant]
     Active Substance: SEVELAMER CARBONATE
  5. COMBIVIR [Concomitant]
     Active Substance: LAMIVUDINE\ZIDOVUDINE
  6. EPIVIR [Concomitant]
     Active Substance: LAMIVUDINE
  7. ISENTRESS [Concomitant]
     Active Substance: RALTEGRAVIR POTASSIUM
  8. KALETRA [Concomitant]
     Active Substance: LOPINAVIR\RITONAVIR
  9. NORVIR [Concomitant]
     Active Substance: RITONAVIR
  10. PREZCOBIX [Concomitant]
     Active Substance: COBICISTAT\DARUNAVIR ETHANOLATE
  11. RETROVIR [Concomitant]
     Active Substance: ZIDOVUDINE
  12. TIVICAY [Concomitant]
     Active Substance: DOLUTEGRAVIR SODIUM
  13. ZERIT [Concomitant]
     Active Substance: STAVUDINE
  14. ABACAVIR [Concomitant]
     Active Substance: ABACAVIR
  15. ACETAMINOPHEN [Concomitant]
     Active Substance: ACETAMINOPHEN
  16. ALBUTEROL [Concomitant]
     Active Substance: ALBUTEROL
  17. AMOXICILLIN [Concomitant]
     Active Substance: AMOXICILLIN
  18. ATROVENT [Concomitant]
     Active Substance: IPRATROPIUM BROMIDE
  19. CEFTRIAXONE [Concomitant]
     Active Substance: CEFTRIAXONE
  20. CHLORDIAZEPOXIDE [Concomitant]
     Active Substance: CHLORDIAZEPOXIDE
  21. GABAPENTIN [Concomitant]
     Active Substance: GABAPENTIN
  22. HYDROMORPHONE [Concomitant]
     Active Substance: HYDROMORPHONE
  23. LORAZEPAM [Concomitant]
     Active Substance: LORAZEPAM
  24. MAGNESIUM OXIDE [Concomitant]
     Active Substance: MAGNESIUM OXIDE
  25. NEPHRO-VITE RX [Concomitant]
  26. PERCOCET [Concomitant]
     Active Substance: ACETAMINOPHEN\OXYCODONE HYDROCHLORIDE
  27. PHENOBARBITAL [Concomitant]
     Active Substance: PHENOBARBITAL
  28. POTASSIUM PHOSPHATE, DIBASIC [Concomitant]
     Active Substance: POTASSIUM PHOSPHATE, DIBASIC
  29. OMEPRAZOLE [Concomitant]
     Active Substance: OMEPRAZOLE
  30. REMERON [Concomitant]
     Active Substance: MIRTAZAPINE
  31. SODIUM BICARBONATE [Concomitant]
     Active Substance: SODIUM BICARBONATE
  32. TRAMADOL [Concomitant]
     Active Substance: TRAMADOL
  33. VALTREX [Concomitant]
     Active Substance: VALACYCLOVIR HYDROCHLORIDE
  34. THIAMINE [Concomitant]
     Active Substance: THIAMINE
  35. VITAMIN D2 [Concomitant]
     Active Substance: ERGOCALCIFEROL
  36. VITAMIN D3 [Concomitant]
     Active Substance: CHOLECALCIFEROL
  37. ZIAGEN [Concomitant]
     Active Substance: ABACAVIR SULFATE
  38. VITAMIN D NOS [Concomitant]
     Active Substance: VITAMIN D NOS
  39. ACYCLOVIR [Concomitant]
     Active Substance: ACYCLOVIR
  40. FAMVIR [Concomitant]
     Active Substance: FAMCICLOVIR

REACTIONS (10)
  - Hyperthyroidism [Not Recovered/Not Resolved]
  - Chronic kidney disease [Not Recovered/Not Resolved]
  - Renal failure [Unknown]
  - Acute kidney injury [Recovered/Resolved]
  - Pain [Not Recovered/Not Resolved]
  - Emotional distress [Not Recovered/Not Resolved]
  - Anxiety [Not Recovered/Not Resolved]
  - Anhedonia [Not Recovered/Not Resolved]
  - Hypertension [Not Recovered/Not Resolved]
  - Anaemia [Not Recovered/Not Resolved]

NARRATIVE: CASE EVENT DATE: 20110101
